FAERS Safety Report 10591243 (Version 2)
Quarter: 2015Q1

REPORT INFORMATION
  Report Type: Spontaneous
  Country: US (occurrence: US)
  Receive Date: 20141118
  Receipt Date: 20150129
  Transmission Date: 20150720
  Serious: No
  Sender: FDA-Public Use
  Company Number: US-PFIZER INC-2014314473

PATIENT
  Age: 29 Year
  Sex: Male

DRUGS (2)
  1. CHANTIX [Suspect]
     Active Substance: VARENICLINE TARTRATE
     Indication: SMOKING CESSATION THERAPY
     Dosage: UNK (1/2 TABLET ONCE A DAY FOR A FEW DAYS, THEN 1 TABLET DURING THE DAY AND 2 TABLETS AT NIGHT)
     Dates: start: 2014
  2. SUBOXONE [Interacting]
     Active Substance: BUPRENORPHINE HYDROCHLORIDE\NALOXONE HYDROCHLORIDE
     Indication: SMOKING CESSATION THERAPY
     Dosage: 8 MG, 1X/DAY
     Dates: start: 2014

REACTIONS (2)
  - Drug screen false positive [Recovered/Resolved]
  - Drug interaction [Recovered/Resolved]

NARRATIVE: CASE EVENT DATE: 2014
